FAERS Safety Report 4502550-6 (Version None)
Quarter: 2004Q4

REPORT INFORMATION
  Report Type: 
  Country: None (occurrence: None)
  Receive Date: 20041112
  Receipt Date: 20041110
  Transmission Date: 20050328
  Serious: Yes (Death)
  Sender: FDA-Public Use
  Company Number: ESWYE153328OCT04

PATIENT
  Age: 63 Year
  Sex: Female

DRUGS (3)
  1. VANDRAL RETARD (VENLAFAXINE HYDROCHLORIDE, CAPSULE, EXTENDED RELEASE, [Suspect]
     Indication: DEPRESSION
     Dosage: ORAL
     Route: 048
     Dates: start: 20020227
  2. HYDROCHLOROTHIAZIDE [Concomitant]
  3. TRANGOREX (AMIODARONE) [Concomitant]

REACTIONS (1)
  - CEREBROVASCULAR ACCIDENT [None]
